FAERS Safety Report 5287965-3 (Version None)
Quarter: 2007Q2

REPORT INFORMATION
  Report Type: 
  Country: None (occurrence: None)
  Receive Date: 20070405
  Receipt Date: 20070322
  Transmission Date: 20071010
  Serious: Yes (Hospitalization, Congenital Anomaly)
  Sender: FDA-Public Use
  Company Number: NLWYE608409FEB07

PATIENT
  Sex: Male

DRUGS (2)
  1. ENBREL [Suspect]
     Indication: ANKYLOSING SPONDYLITIS
     Dates: end: 20041116
  2. ENBREL [Suspect]
     Dates: start: 20041117

REACTIONS (5)
  - AORTA HYPOPLASIA [None]
  - COARCTATION OF THE AORTA [None]
  - TRANSMISSION OF DRUG VIA SEMEN [None]
  - TRANSPOSITION OF THE GREAT VESSELS [None]
  - VENTRICULAR SEPTAL DEFECT [None]
